FAERS Safety Report 10226806 (Version 1)
Quarter: 2014Q2

REPORT INFORMATION
  Report Type: Spontaneous
  Country: IT (occurrence: IT)
  Receive Date: 20140610
  Receipt Date: 20140610
  Transmission Date: 20141212
  Serious: Yes (Hospitalization)
  Sender: FDA-Public Use
  Company Number: IT-ROCHE-1415775

PATIENT
  Age: 2 Year
  Sex: Female

DRUGS (2)
  1. ROCEFIN [Suspect]
     Indication: BRONCHITIS
     Route: 030
     Dates: start: 20140122, end: 20140125
  2. MACLADIN [Suspect]
     Indication: BRONCHITIS
     Route: 048
     Dates: start: 20140216, end: 20140228

REACTIONS (3)
  - Ecchymosis [Recovering/Resolving]
  - Epistaxis [Recovering/Resolving]
  - Petechiae [Recovering/Resolving]
